FAERS Safety Report 14196345 (Version 6)
Quarter: 2018Q1

REPORT INFORMATION
  Report Type: Report from Study
  Country: CA (occurrence: CA)
  Receive Date: 20171116
  Receipt Date: 20180125
  Transmission Date: 20180508
  Serious: Yes (Death, Disabling, Other)
  Sender: FDA-Public Use
  Company Number: PHHO2017CA015536

PATIENT
  Age: 68 Year
  Sex: Female
  Weight: 49.6 kg

DRUGS (11)
  1. GABAPENTIN. [Concomitant]
     Active Substance: GABAPENTIN
     Indication: NEURALGIA
     Dosage: 100 MG, QD
     Route: 065
     Dates: start: 2009
  2. SENNA [Concomitant]
     Active Substance: SENNA LEAF\SENNOSIDES\SENNOSIDES A AND B
     Indication: PRODUCT USED FOR UNKNOWN INDICATION
     Dosage: PRN
     Route: 065
  3. LEE011 [Suspect]
     Active Substance: RIBOCICLIB
     Indication: SARCOMA
     Dosage: 300 MG, 2 WEEKS ON, 2 WEEKS OFF
     Route: 048
     Dates: start: 20170314, end: 20171016
  4. HDM201 [Suspect]
     Active Substance: INVESTIGATIONAL PRODUCT
     Indication: SARCOMA
     Dosage: 200 MG, EVERY 4 WEEKS
     Route: 048
     Dates: start: 20170314, end: 20171003
  5. SENNOKOTT [Concomitant]
     Indication: CONSTIPATION
     Dosage: UNK
     Route: 065
     Dates: start: 2009
  6. MAXERAN [Concomitant]
     Active Substance: METOCLOPRAMIDE HYDROCHLORIDE
     Indication: NAUSEA
     Dosage: UNK
     Route: 065
     Dates: start: 20170315
  7. ACYCLOVIR. [Concomitant]
     Active Substance: ACYCLOVIR
     Indication: PRODUCT USED FOR UNKNOWN INDICATION
     Dosage: 400 MG, TID
     Route: 048
  8. COLACE [Concomitant]
     Active Substance: DOCUSATE SODIUM
     Indication: CONSTIPATION
     Dosage: UNK
     Route: 065
     Dates: start: 2009
  9. HYDROMORPHONE [Concomitant]
     Active Substance: HYDROMORPHONE
     Indication: ABDOMINAL PAIN
     Dosage: UNK
     Route: 065
     Dates: start: 201609
  10. PEG [Concomitant]
     Active Substance: POLYETHYLENE GLYCOLS
     Indication: PRODUCT USED FOR UNKNOWN INDICATION
     Dosage: PRN
     Route: 065
  11. NABILONE [Concomitant]
     Active Substance: NABILONE
     Indication: NEURALGIA
     Dosage: UNK
     Route: 065
     Dates: start: 201609

REACTIONS (4)
  - Disturbance in attention [Not Recovered/Not Resolved]
  - Memory impairment [Not Recovered/Not Resolved]
  - Aphasia [Not Recovered/Not Resolved]
  - Creutzfeldt-Jakob disease [Fatal]

NARRATIVE: CASE EVENT DATE: 20171001
